FAERS Safety Report 14654565 (Version 6)
Quarter: 2018Q3

REPORT INFORMATION
  Report Type: Report from Study
  Country: None (occurrence: US)
  Receive Date: 20180319
  Receipt Date: 20180915
  Transmission Date: 20181010
  Serious: Yes (Hospitalization, Other)
  Sender: FDA-Public Use
  Company Number: US-ABBVIE-17K-163-2044013-00

PATIENT
  Age: 67 Year
  Sex: Male

DRUGS (3)
  1. HUMIRA [Suspect]
     Active Substance: ADALIMUMAB
     Indication: RHEUMATOID ARTHRITIS
     Route: 058
     Dates: start: 201704
  2. PENICILLIN NOS [Suspect]
     Active Substance: PENICILLIN
     Indication: PRODUCT USED FOR UNKNOWN INDICATION
     Route: 065
     Dates: start: 20180511
  3. HUMIRA [Suspect]
     Active Substance: ADALIMUMAB
     Indication: DRUG THERAPY

REACTIONS (26)
  - Laceration [Unknown]
  - Syncope [Unknown]
  - Disturbance in attention [Unknown]
  - Amnesia [Not Recovered/Not Resolved]
  - Memory impairment [Unknown]
  - Drug hypersensitivity [Unknown]
  - Muscle disorder [Unknown]
  - Pain in extremity [Unknown]
  - Condition aggravated [Unknown]
  - Blood sodium decreased [Unknown]
  - Gynaecomastia [Unknown]
  - Balance disorder [Not Recovered/Not Resolved]
  - Insomnia [Unknown]
  - Therapeutic response shortened [Unknown]
  - Weight increased [Unknown]
  - Decreased appetite [Unknown]
  - Vision blurred [Unknown]
  - Asthenia [Unknown]
  - Gait inability [Unknown]
  - Fall [Unknown]
  - Muscular weakness [Unknown]
  - Swelling [Unknown]
  - Mobility decreased [Unknown]
  - Fall [Not Recovered/Not Resolved]
  - Peripheral swelling [Unknown]
  - Pain [Unknown]

NARRATIVE: CASE EVENT DATE: 2017
